FAERS Safety Report 6077668-X (Version None)
Quarter: 2009Q1

REPORT INFORMATION
  Report Type: 
  Country: None (occurrence: None)
  Receive Date: 20090211
  Receipt Date: 20090127
  Transmission Date: 20090719
  Serious: Yes (Death, Hospitalization)
  Sender: FDA-Public Use
  Company Number: 2009S1001522

PATIENT
  Age: 90 Year
  Sex: Female

DRUGS (6)
  1. OMEPRAZOLE [Suspect]
     Indication: DRUG USE FOR UNKNOWN INDICATION
     Dosage: 20 MG; DAILY;, 40 MG; DAILY;
     Dates: start: 20080813, end: 20080826
  2. OMEPRAZOLE [Suspect]
     Indication: DRUG USE FOR UNKNOWN INDICATION
     Dosage: 20 MG; DAILY;, 40 MG; DAILY;
     Dates: start: 20080813
  3. TRIFLUOPERAZINE (TRIFLUOPERAZINE) (1 MG) [Suspect]
     Indication: DRUG USE FOR UNKNOWN INDICATION
     Dosage: 1 MG; 4 TIMES A DAY;
     Dates: end: 20080828
  4. ATENOLOL [Concomitant]
  5. ENALAPRIL [Concomitant]
  6. FERROUS SULFATE TAB [Concomitant]

REACTIONS (4)
  - ACUTE HEPATIC FAILURE [None]
  - DYSPHAGIA [None]
  - HEPATIC ENCEPHALOPATHY [None]
  - HEPATIC NECROSIS [None]
